FAERS Safety Report 7828576-2 (Version None)
Quarter: 2011Q4

REPORT INFORMATION
  Report Type: 
  Country: None (occurrence: None)
  Receive Date: 20111020
  Receipt Date: 20111020
  Transmission Date: 20120403
  Serious: Yes (Hospitalization)
  Sender: FDA-Public Use
  Company Number: None

PATIENT
  Age: 28 Year
  Sex: Female
  Weight: 90 kg

DRUGS (1)
  1. PLAN B [Suspect]

REACTIONS (3)
  - PREGNANCY AFTER POST COITAL CONTRACEPTION [None]
  - ABORTION SPONTANEOUS [None]
  - OVARIAN CYST [None]
